FAERS Safety Report 6701340-3 (Version None)
Quarter: 2010Q2

REPORT INFORMATION
  Report Type: 
  Country: None (occurrence: None)
  Receive Date: 20100429
  Receipt Date: 20100422
  Transmission Date: 20101027
  Serious: Yes (Hospitalization)
  Sender: FDA-Public Use
  Company Number: US-BIOGENIDEC-2010BI013395

PATIENT
  Age: 40 Year
  Sex: Male
  Weight: 68 kg

DRUGS (2)
  1. AVONEX [Suspect]
     Indication: MULTIPLE SCLEROSIS
     Route: 030
     Dates: start: 20010101, end: 20030101
  2. AVONEX [Suspect]
     Route: 030
     Dates: start: 20030101

REACTIONS (7)
  - COLLAPSE OF LUNG [None]
  - FAECAL INCONTINENCE [None]
  - HAEMORRHAGE [None]
  - INTESTINAL PERFORATION [None]
  - PNEUMONIA [None]
  - PULMONARY THROMBOSIS [None]
  - URINARY INCONTINENCE [None]
